FAERS Safety Report 26090335 (Version 1)
Quarter: 2025Q4

REPORT INFORMATION
  Report Type: Spontaneous
  Country: JP (occurrence: JP)
  Receive Date: 20251126
  Receipt Date: 20251126
  Transmission Date: 20260117
  Serious: Yes (Other)
  Sender: EAGLE
  Company Number: JP-EAGLE PHARMACEUTICALS, INC.-JP-2025EAG000137

PATIENT

DRUGS (5)
  1. REMIMAZOLAM [Suspect]
     Active Substance: REMIMAZOLAM
     Indication: General anaesthesia
     Dosage: 10 MILLIGRAM
     Route: 042
     Dates: start: 202510, end: 202510
  2. XYLOCAINE [Suspect]
     Active Substance: LIDOCAINE HYDROCHLORIDE
     Indication: Anaesthesia
     Dosage: UNK
     Route: 042
     Dates: start: 202510
  3. ROCURONIUM BROMIDE [Suspect]
     Active Substance: ROCURONIUM BROMIDE
     Indication: Anaesthesia
     Dosage: UNK
     Route: 042
     Dates: start: 202510
  4. CHLORHEXIDINE GLUCONATE [Suspect]
     Active Substance: CHLORHEXIDINE GLUCONATE
     Indication: Product used for unknown indication
     Dosage: UNK
     Route: 061
     Dates: start: 202510
  5. REMIFENTANIL HYDROCHLORIDE [Suspect]
     Active Substance: REMIFENTANIL HYDROCHLORIDE
     Indication: Anaesthesia
     Dosage: UNK
     Route: 042
     Dates: start: 202510

REACTIONS (2)
  - Cardiac arrest [Unknown]
  - Flushing [Unknown]

NARRATIVE: CASE EVENT DATE: 20251001
